FAERS Safety Report 20891636 (Version 1)
Quarter: 2022Q2

REPORT INFORMATION
  Report Type: Spontaneous
  Country: US (occurrence: US)
  Receive Date: 20220530
  Receipt Date: 20220530
  Transmission Date: 20220721
  Serious: No
  Sender: FDA-Public Use
  Company Number: US-BRISTOL-MYERS SQUIBB COMPANY-2022-033879

PATIENT
  Age: 80 Year
  Sex: Female
  Weight: 72.54 kg

DRUGS (1)
  1. REVLIMID [Suspect]
     Active Substance: LENALIDOMIDE
     Indication: Plasma cell myeloma
     Dosage: FREQ-1 CAPSULE DAILY21/7
     Route: 048

REACTIONS (1)
  - Vaginal haemorrhage [Unknown]
